FAERS Safety Report 4363229-7 (Version None)
Quarter: 2004Q2

REPORT INFORMATION
  Report Type: 
  Country: None (occurrence: None)
  Receive Date: 20040519
  Receipt Date: 20040507
  Transmission Date: 20050107
  Serious: Yes (Hospitalization)
  Sender: FDA-Public Use
  Company Number: 04P-130-0260171-01

PATIENT
  Age: 35 Year
  Sex: Female

DRUGS (11)
  1. HUMIRA [Suspect]
     Indication: RHEUMATOID ARTHRITIS
     Dosage: 1 IN 2 WK, SUBCUTANEOUS
     Route: 058
     Dates: start: 20030930, end: 20040330
  2. PREDNISONE [Concomitant]
  3. METHOTREXATE SODIUM [Concomitant]
  4. ARTHROTEC [Concomitant]
  5. OMEPRAZOLE [Concomitant]
  6. CALCIFEDIOL [Concomitant]
  7. ADALGUNN [Concomitant]
  8. CLONIXIN LYSINATE [Concomitant]
  9. GLUCOSAMINE SULFATE [Concomitant]
  10. SANDOCAL [Concomitant]
  11. SALCAT [Concomitant]

REACTIONS (5)
  - CONFUSIONAL STATE [None]
  - DYSARTHRIA [None]
  - HEMIPARESIS [None]
  - LUNG INFECTION [None]
  - PYREXIA [None]
